FAERS Safety Report 11625575 (Version 2)
Quarter: 2016Q1

REPORT INFORMATION
  Report Type: Spontaneous
  Country: JP (occurrence: JP)
  Receive Date: 20151013
  Receipt Date: 20160111
  Transmission Date: 20160525
  Serious: Yes (Life-Threatening)
  Sender: FDA-Public Use
  Company Number: JP-JNJFOC-20151008328

PATIENT
  Age: 81 Year
  Sex: Male
  Weight: 70 kg

DRUGS (9)
  1. TOLVAPTAN [Concomitant]
     Active Substance: TOLVAPTAN
     Indication: POLYURIA
     Route: 048
     Dates: end: 20150831
  2. PURSENNID [Concomitant]
     Active Substance: SENNOSIDES A AND B
     Indication: CONSTIPATION
     Route: 048
     Dates: end: 20150831
  3. GASTER [Concomitant]
     Active Substance: FAMOTIDINE
     Indication: PROPHYLAXIS
     Route: 048
     Dates: end: 20150831
  4. TAMBOCOR [Concomitant]
     Active Substance: FLECAINIDE ACETATE
     Indication: ARRHYTHMIA
     Route: 048
     Dates: end: 20150831
  5. ZYLORIC [Concomitant]
     Active Substance: ALLOPURINOL
     Indication: HYPERURICAEMIA
     Route: 048
     Dates: end: 20150831
  6. MAGMITT [Concomitant]
     Active Substance: MAGNESIUM OXIDE
     Indication: CONSTIPATION
     Route: 048
     Dates: end: 20150831
  7. XARELTO [Suspect]
     Active Substance: RIVAROXABAN
     Indication: THROMBOSIS PROPHYLAXIS
     Route: 048
     Dates: end: 20150831
  8. DIART [Concomitant]
     Active Substance: AZOSEMIDE
     Indication: POLYURIA
     Route: 048
     Dates: end: 20150831
  9. MAGNESIUM ASPARTATE W/POTASSIUM ASPARTATE [Concomitant]
     Indication: HYPOKALAEMIA
     Route: 048
     Dates: end: 20150831

REACTIONS (1)
  - Arterial occlusive disease [Recovered/Resolved with Sequelae]

NARRATIVE: CASE EVENT DATE: 20150901
